FAERS Safety Report 8499980-7 (Version None)
Quarter: 2012Q3

REPORT INFORMATION
  Report Type: 
  Country: None (occurrence: None)
  Receive Date: 20120710
  Receipt Date: 20120626
  Transmission Date: 20120928
  Serious: Yes (Other)
  Sender: FDA-Public Use
  Company Number: CA-ELI_LILLY_AND_COMPANY-CA201205002995

PATIENT
  Sex: Female
  Weight: 71.655 kg

DRUGS (10)
  1. CYMBALTA [Suspect]
     Dosage: 30 MG, QOD
     Dates: start: 20120225, end: 20120302
  2. CYMBALTA [Suspect]
     Indication: PAIN
     Dosage: 30 MG, QD
     Dates: start: 20120124, end: 20120224
  3. VITAMIN B-12 [Concomitant]
  4. FLEXERIL [Concomitant]
  5. VOLTAREN EMULGEL ^GEIGY^ [Concomitant]
  6. VITAMIN D [Concomitant]
     Dosage: 2000 IU, QD
  7. EPIPEN [Concomitant]
     Dosage: 1 DF, PRN
  8. ZOPICLONE [Concomitant]
     Dosage: 7.5 MG, UNK
  9. MELOXICAM [Concomitant]
     Dosage: 7.5 MG, PRN
  10. EVISTA                                  /SCH/ [Concomitant]
     Dosage: 60 MG, UNK

REACTIONS (20)
  - FEELING ABNORMAL [None]
  - HYPOAESTHESIA [None]
  - WEIGHT DECREASED [None]
  - PAIN [None]
  - DISTURBANCE IN ATTENTION [None]
  - INTENTIONAL DRUG MISUSE [None]
  - DRUG WITHDRAWAL SYNDROME [None]
  - PAIN IN EXTREMITY [None]
  - DIZZINESS [None]
  - HEADACHE [None]
  - PRESYNCOPE [None]
  - CRYING [None]
  - SUICIDAL IDEATION [None]
  - VISUAL ACUITY REDUCED [None]
  - PARAESTHESIA [None]
  - AGITATION [None]
  - VOMITING [None]
  - EYE DISORDER [None]
  - STARING [None]
  - DECREASED APPETITE [None]
